FAERS Safety Report 9129033 (Version 1)
Quarter: 2013Q1

REPORT INFORMATION
  Report Type: Spontaneous
  Country: PL (occurrence: PL)
  Receive Date: 20130228
  Receipt Date: 20130228
  Transmission Date: 20140127
  Serious: Yes (Other)
  Sender: FDA-Public Use
  Company Number: PL-ROCHE-1196157

PATIENT
  Age: 64 Year
  Sex: Female
  Weight: 69.2 kg

DRUGS (1)
  1. BEVACIZUMAB [Suspect]
     Indication: COLORECTAL CANCER
     Route: 042
     Dates: start: 20120905, end: 20130111

REACTIONS (1)
  - Palmar-plantar erythrodysaesthesia syndrome [Unknown]
